FAERS Safety Report 13040700 (Version 4)
Quarter: 2020Q1

REPORT INFORMATION
  Report Type: Report from Study
  Country: CO (occurrence: CO)
  Receive Date: 20161219
  Receipt Date: 20200304
  Transmission Date: 20200409
  Serious: Yes (Hospitalization)
  Sender: FDA-Public Use
  Company Number: CO-JNJFOC-20161215722

PATIENT
  Age: 41 Year
  Sex: Male
  Weight: 51 kg

DRUGS (3)
  1. RISPERDAL CONSTA [Suspect]
     Active Substance: RISPERIDONE
     Indication: BIPOLAR DISORDER
     Route: 030
     Dates: start: 20160325, end: 20191211
  2. VALPROIC ACID. [Concomitant]
     Active Substance: VALPROIC ACID
     Route: 048
  3. RISPERDAL CONSTA [Suspect]
     Active Substance: RISPERIDONE
     Route: 030
     Dates: start: 20200102, end: 20200131

REACTIONS (7)
  - Aggression [Recovering/Resolving]
  - Hallucination, auditory [Recovering/Resolving]
  - Bipolar disorder [Recovered/Resolved with Sequelae]
  - Decreased appetite [Recovering/Resolving]
  - Hallucination, visual [Recovering/Resolving]
  - Insomnia [Not Recovered/Not Resolved]
  - Anxiety [Recovering/Resolving]

NARRATIVE: CASE EVENT DATE: 20161209
